FAERS Safety Report 20346641 (Version 1)
Quarter: 2022Q1

REPORT INFORMATION
  Report Type: Spontaneous
  Country: US (occurrence: None)
  Receive Date: 20220118
  Receipt Date: 20220118
  Transmission Date: 20220423
  Serious: No
  Sender: FDA-Public Use
  Company Number: None

PATIENT
  Sex: Male
  Weight: 66.6 kg

DRUGS (2)
  1. CARBOPLATIN [Suspect]
     Active Substance: CARBOPLATIN
     Indication: Product used for unknown indication
     Dates: end: 20211123
  2. TAXOL [Suspect]
     Active Substance: PACLITAXEL
     Dates: end: 20211123

REACTIONS (3)
  - Pain [None]
  - Hypophagia [None]
  - Eating disorder [None]

NARRATIVE: CASE EVENT DATE: 20211129
